FAERS Safety Report 7611767-3 (Version None)
Quarter: 2011Q3

REPORT INFORMATION
  Report Type: 
  Country: None (occurrence: None)
  Receive Date: 20110715
  Receipt Date: 20110712
  Transmission Date: 20111222
  Serious: Yes (Other)
  Sender: FDA-Public Use
  Company Number: US-PFIZER INC-2011107647

PATIENT
  Sex: Female
  Weight: 118 kg

DRUGS (8)
  1. NEXIUM [Concomitant]
     Dosage: 40 MG, UNK
  2. SIMVASTATIN [Concomitant]
     Dosage: UNK
  3. LYRICA [Suspect]
     Indication: NERVE INJURY
     Dosage: 150 MG, 2X/DAY
     Dates: start: 20110201
  4. LYRICA [Suspect]
     Indication: RADICULITIS BRACHIAL
     Dosage: 150 MG, 2X/DAY
     Route: 048
     Dates: start: 20110314, end: 20110417
  5. LISINOPRIL [Concomitant]
     Dosage: UNK
  6. BUSPAR [Concomitant]
     Dosage: 20 MG, UNK
  7. ASCORBIC ACID [Concomitant]
  8. PRENATAL VITAMINS [Concomitant]

REACTIONS (4)
  - LOSS OF CONSCIOUSNESS [None]
  - VERTIGO [None]
  - FALL [None]
  - DIZZINESS [None]
